FAERS Safety Report 7311662-3 (Version None)
Quarter: 2011Q1

REPORT INFORMATION
  Report Type: 
  Country: None (occurrence: None)
  Receive Date: 20110215
  Receipt Date: 20110215
  Transmission Date: 20110831
  Serious: No
  Sender: FDA-Public Use
  Company Number: None

PATIENT
  Age: 86 Year
  Sex: Male
  Weight: 65.7716 kg

DRUGS (2)
  1. LANSOPRAZOLE [Suspect]
     Indication: ANTACID THERAPY
     Dosage: 1 30 MG TAB DAILY 1-TAB DAILY
     Dates: start: 20101223, end: 20110101
  2. LOSARTAN - 25 MG [Suspect]
     Indication: BLOOD PRESSURE
     Dosage: 1-25MG TAB DAILY 7 TAB DAILY
     Dates: start: 20101221, end: 20110123

REACTIONS (3)
  - ARTHRALGIA [None]
  - MYALGIA [None]
  - MUSCLE SPASMS [None]
